FAERS Safety Report 6782796-7 (Version None)
Quarter: 2010Q2

REPORT INFORMATION
  Report Type: 
  Country: None (occurrence: None)
  Receive Date: 20100616
  Receipt Date: 20100607
  Transmission Date: 20101027
  Serious: Yes (Hospitalization)
  Sender: FDA-Public Use
  Company Number: 2010AL003331

PATIENT
  Age: 54 Year
  Sex: Female

DRUGS (4)
  1. FLUOXETINE [Suspect]
     Indication: OBSESSIVE-COMPULSIVE DISORDER
     Dosage: 60 MG;QD
  2. VALPROATE SODIUM [Concomitant]
  3. LORAZEPAM [Concomitant]
  4. SODIUM DIVALPROEX [Concomitant]

REACTIONS (8)
  - ANXIETY [None]
  - BRADYKINESIA [None]
  - DRUG INTERACTION [None]
  - EXTRAPYRAMIDAL DISORDER [None]
  - HYPERTONIA [None]
  - NEUROLEPTIC MALIGNANT SYNDROME [None]
  - PARKINSONIAN GAIT [None]
  - PARKINSONIAN REST TREMOR [None]
